FAERS Safety Report 6303936-X (Version None)
Quarter: 2009Q3

REPORT INFORMATION
  Report Type: 
  Country: None (occurrence: None)
  Receive Date: 20090810
  Receipt Date: 20090810
  Transmission Date: 20100115
  Serious: Yes (Other)
  Sender: FDA-Public Use
  Company Number: None

PATIENT
  Age: 56 Year
  Sex: Male
  Weight: 97.5234 kg

DRUGS (1)
  1. CRESTOR [Suspect]
     Indication: PROPHYLAXIS
     Dosage: 5MG ONCE PER DAY PO
     Route: 048

REACTIONS (1)
  - HAEMATOSPERMIA [None]
